FAERS Safety Report 4408331-6 (Version None)
Quarter: 2004Q3

REPORT INFORMATION
  Report Type: 
  Country: None (occurrence: None)
  Receive Date: 20040722
  Receipt Date: 20040706
  Transmission Date: 20050211
  Serious: Yes (Other)
  Sender: FDA-Public Use
  Company Number: B0338927A

PATIENT
  Sex: 0

DRUGS (4)
  1. EPIVIR [Suspect]
     Indication: HIV INFECTION
  2. RETROVIR [Suspect]
     Indication: HIV INFECTION
  3. ZIAGEN [Suspect]
     Indication: HIV INFECTION
  4. NEVIRAPINE (NEVIRAPINE) [Suspect]
     Indication: HIV INFECTION

REACTIONS (1)
  - ANAEMIA [None]
